FAERS Safety Report 16891807 (Version 1)
Quarter: 2019Q4

REPORT INFORMATION
  Report Type: Spontaneous
  Country: US (occurrence: US)
  Receive Date: 20191007
  Receipt Date: 20191007
  Transmission Date: 20200122
  Serious: No
  Sender: FDA-Public Use
  Company Number: US-AKRON, INC.-2075357

PATIENT

DRUGS (1)
  1. TROPICAMIDE OPHTHALMIC SOLUTION 1% [Suspect]
     Active Substance: TROPICAMIDE
     Route: 047

REACTIONS (1)
  - Pupil fixed [Recovered/Resolved]
